FAERS Safety Report 4986902-6 (Version None)
Quarter: 2006Q2

REPORT INFORMATION
  Report Type: 
  Country: None (occurrence: None)
  Receive Date: 20060501
  Receipt Date: 20060421
  Transmission Date: 20061013
  Serious: Yes (Other)
  Sender: FDA-Public Use
  Company Number: PHBS2006ES05789

PATIENT
  Age: 73 Year
  Sex: Male

DRUGS (1)
  1. ZOMETA [Suspect]
     Indication: BONE NEOPLASM
     Dosage: 4 MG, UNK
     Route: 042
     Dates: start: 20040101

REACTIONS (1)
  - OSTEONECROSIS [None]
